FAERS Safety Report 9230004 (Version 1)
Quarter: 2013Q2

REPORT INFORMATION
  Report Type: Other
  Country: SI (occurrence: SI)
  Receive Date: 20130415
  Receipt Date: 20130415
  Transmission Date: 20140414
  Serious: Yes (Hospitalization, Other)
  Sender: FDA-Public Use
  Company Number: SI-SUN PHARMACEUTICAL INDUSTRIES LTD-2013SUN00447

PATIENT
  Sex: 0

DRUGS (7)
  1. LIPODOX INJECTION 2MG/ML MFG/LABEL: SUN PHARMA [Suspect]
     Indication: OVARIAN CANCER
     Dosage: 5 ML, UNK
     Route: 042
     Dates: start: 20130315, end: 20130315
  2. LIPODOX INJECTION 2MG/ML MFG/LABEL: SUN PHARMA [Suspect]
     Dosage: REINTRODUCED WITH SLOWEST INFUSION SPEED
     Route: 042
     Dates: start: 20130315, end: 20130315
  3. DEXAMETHASONE [Concomitant]
     Indication: PREMEDICATION
     Dosage: 20 MG, UNK
     Route: 042
  4. RANITAL [Concomitant]
     Indication: PREMEDICATION
     Dosage: 50 MG, UNK
     Route: 042
  5. TAVEGYL [Concomitant]
     Indication: PREMEDICATION
     Dosage: 2 MG, UNK
     Route: 042
  6. FRAGMIN [Concomitant]
     Indication: THROMBOSIS
     Dosage: 7500 IU, BID
  7. CARBOPLATIN [Concomitant]

REACTIONS (6)
  - Hypertension [Recovered/Resolved]
  - Restlessness [Recovered/Resolved]
  - Infusion related reaction [Recovered/Resolved]
  - Dyspnoea [Recovered/Resolved]
  - Headache [Recovered/Resolved]
  - Erythema [Recovered/Resolved]
